FAERS Safety Report 16972747 (Version 1)
Quarter: 2019Q4

REPORT INFORMATION
  Report Type: Spontaneous
  Country: US (occurrence: US)
  Receive Date: 20191030
  Receipt Date: 20191030
  Transmission Date: 20200122
  Serious: No
  Sender: FDA-Public Use
  Company Number: US-UNITED THERAPEUTICS-UNT-2019-017897

PATIENT
  Age: 56 Year
  Sex: Female
  Weight: 78.5 kg

DRUGS (2)
  1. TADALAFIL. [Concomitant]
     Active Substance: TADALAFIL
     Indication: PRODUCT USED FOR UNKNOWN INDICATION
     Dosage: UNK
     Route: 065
  2. REMODULIN [Suspect]
     Active Substance: TREPROSTINIL
     Indication: PULMONARY ARTERIAL HYPERTENSION
     Dosage: 0.012 ?G/KG, CONTINUING
     Route: 041
     Dates: start: 20190801

REACTIONS (4)
  - Dizziness [Recovering/Resolving]
  - Asthenia [Recovering/Resolving]
  - Device use issue [Unknown]
  - Hypoaesthesia [Recovering/Resolving]

NARRATIVE: CASE EVENT DATE: 20191023
